FAERS Safety Report 8484403-4 (Version None)
Quarter: 2012Q3

REPORT INFORMATION
  Report Type: 
  Country: None (occurrence: None)
  Receive Date: 20120703
  Receipt Date: 20120628
  Transmission Date: 20120928
  Serious: Yes (Hospitalization)
  Sender: FDA-Public Use
  Company Number: PHHY2012JP056198

PATIENT
  Age: 82 Year
  Sex: Female

DRUGS (3)
  1. RASILEZ [Suspect]
     Indication: RENAL IMPAIRMENT
     Route: 048
  2. SODIUM POLYSTYRENE SULFONATE [Concomitant]
     Route: 048
  3. KREMEZIN [Concomitant]
     Route: 048

REACTIONS (1)
  - HAEMATOCHEZIA [None]
